FAERS Safety Report 7170246-0 (Version None)
Quarter: 2010Q4

REPORT INFORMATION
  Report Type: 
  Country: None (occurrence: None)
  Receive Date: 20101217
  Receipt Date: 20101214
  Transmission Date: 20110411
  Serious: Yes (Other)
  Sender: FDA-Public Use
  Company Number: US-PFIZER INC-2010172001

PATIENT
  Sex: Female
  Weight: 63 kg

DRUGS (1)
  1. PREMPRO [Suspect]
     Indication: MENOPAUSE
     Dosage: 0.625 MG, DAILY
     Route: 048
     Dates: start: 20101101

REACTIONS (1)
  - UTERINE HAEMORRHAGE [None]
